FAERS Safety Report 6443686-2 (Version None)
Quarter: 2009Q4

REPORT INFORMATION
  Report Type: 
  Country: None (occurrence: None)
  Receive Date: 20091117
  Receipt Date: 20091111
  Transmission Date: 20100525
  Serious: Yes (Other)
  Sender: FDA-Public Use
  Company Number: BR-ABBOTT-09P-020-0608152-00

PATIENT
  Sex: Female
  Weight: 60 kg

DRUGS (5)
  1. HUMIRA [Suspect]
     Indication: ANKYLOSING SPONDYLITIS
     Route: 058
  2. VALSARTAN [Concomitant]
     Indication: BLOOD PRESSURE
     Route: 048
  3. DEFLAZACORT [Concomitant]
     Indication: ANKYLOSING SPONDYLITIS
     Route: 048
  4. KETOROLAC TROMETAMOL [Concomitant]
     Indication: MUSCULOSKELETAL PAIN
     Route: 048
  5. LEVOTHYROXINE SODIUM [Concomitant]
     Indication: THYROID DISORDER
     Route: 048

REACTIONS (3)
  - CARPAL TUNNEL SYNDROME [None]
  - HYPOAESTHESIA [None]
  - PARAESTHESIA [None]
